FAERS Safety Report 12612489 (Version 1)
Quarter: 2016Q3

REPORT INFORMATION
  Report Type: Spontaneous
  Country: US (occurrence: US)
  Receive Date: 20160801
  Receipt Date: 20160801
  Transmission Date: 20161109
  Serious: No
  Sender: FDA-Public Use
  Company Number: US-MEDA-2016070084

PATIENT
  Sex: Female
  Weight: 64 kg

DRUGS (4)
  1. AZATHIOPRINE. [Concomitant]
     Active Substance: AZATHIOPRINE
     Dates: start: 2000
  2. ROWASA [Suspect]
     Active Substance: MESALAMINE
     Indication: COLITIS ULCERATIVE
     Route: 054
     Dates: start: 2000, end: 2011
  3. DIPENTUM [Concomitant]
     Active Substance: OLSALAZINE SODIUM
     Indication: COLITIS ULCERATIVE
     Route: 048
     Dates: start: 2000
  4. ROWASA [Suspect]
     Active Substance: MESALAMINE
     Indication: COLITIS ULCERATIVE
     Route: 054
     Dates: end: 2014

REACTIONS (2)
  - Colitis ulcerative [Recovered/Resolved]
  - Rectal spasm [Recovered/Resolved]
